FAERS Safety Report 10853640 (Version 1)
Quarter: 2015Q1

REPORT INFORMATION
  Report Type: Spontaneous
  Country: US (occurrence: None)
  Receive Date: 20150218
  Receipt Date: 20150218
  Transmission Date: 20150721
  Serious: No
  Sender: FDA-Public Use
  Company Number: None

PATIENT
  Age: 34 Year
  Sex: Male

DRUGS (1)
  1. LOMUSTINE. [Suspect]
     Active Substance: LOMUSTINE
     Indication: BRAIN NEOPLASM MALIGNANT
     Dosage: 200MG 1X Q 6 WKS PO
     Route: 048
     Dates: start: 20141205, end: 201412

REACTIONS (2)
  - Therapy cessation [None]
  - Disease progression [None]

NARRATIVE: CASE EVENT DATE: 201412
